FAERS Safety Report 25128991 (Version 3)
Quarter: 2025Q3

REPORT INFORMATION
  Report Type: Spontaneous
  Country: US (occurrence: US)
  Receive Date: 20250327
  Receipt Date: 20250820
  Transmission Date: 20251021
  Serious: No
  Sender: SANOFI AVENTIS
  Company Number: US-SA-2025SA088054

PATIENT
  Age: 63 Year
  Sex: Female
  Weight: 77.551 kg

DRUGS (16)
  1. DUPIXENT [Suspect]
     Active Substance: DUPILUMAB
     Indication: Chronic rhinosinusitis with nasal polyps
     Dosage: 300 MG, QOW
     Route: 058
     Dates: start: 20230711, end: 202503
  2. DUPIXENT [Suspect]
     Active Substance: DUPILUMAB
     Indication: Asthma
  3. DUPIXENT [Suspect]
     Active Substance: DUPILUMAB
     Indication: Nasal polyps
  4. ZETIA [Concomitant]
     Active Substance: EZETIMIBE
  5. DOCONEXENT\ICOSAPENT [Concomitant]
     Active Substance: DOCONEXENT\ICOSAPENT
  6. CETIRIZINE HCL [Concomitant]
     Active Substance: CETIRIZINE HYDROCHLORIDE
  7. PRAVASTATIN SODIUM [Concomitant]
     Active Substance: PRAVASTATIN SODIUM
  8. ALLOPURINOL [Concomitant]
     Active Substance: ALLOPURINOL
  9. METHOCARBAMOL [Concomitant]
     Active Substance: METHOCARBAMOL
  10. TYLENOL [Concomitant]
     Active Substance: ACETAMINOPHEN
  11. MAGNESIUM [Concomitant]
     Active Substance: MAGNESIUM
  12. CHOLECALCIFEROL [Concomitant]
     Active Substance: CHOLECALCIFEROL
  13. FAMOTIDINE [Concomitant]
     Active Substance: FAMOTIDINE
  14. SINGULAIR [Concomitant]
     Active Substance: MONTELUKAST SODIUM
  15. PREBIOTICS NOS;PROBIOTICS NOS [Concomitant]
  16. BUDESONIDE [Concomitant]
     Active Substance: BUDESONIDE

REACTIONS (7)
  - Illness [Not Recovered/Not Resolved]
  - Dysphonia [Not Recovered/Not Resolved]
  - Productive cough [Unknown]
  - Condition aggravated [Unknown]
  - Throat irritation [Unknown]
  - Arthralgia [Unknown]
  - Product use in unapproved indication [Unknown]

NARRATIVE: CASE EVENT DATE: 20230711
